FAERS Safety Report 8305428-5 (Version None)
Quarter: 2012Q2

REPORT INFORMATION
  Report Type: 
  Country: None (occurrence: None)
  Receive Date: 20120423
  Receipt Date: 20120418
  Transmission Date: 20120825
  Serious: Yes (Other)
  Sender: FDA-Public Use
  Company Number: PHHY2012FR033225

PATIENT
  Sex: Female

DRUGS (2)
  1. DOCETAXEL [Suspect]
     Indication: BREAST CANCER
     Dosage: 160 MG, ONCE EVERY 21 DAYS
     Route: 041
     Dates: start: 20111221
  2. AVASTIN [Suspect]
     Indication: BREAST CANCER
     Dosage: 900 MG, ONCE EVERY 21 DAYS
     Route: 041
     Dates: start: 20120109, end: 20120220

REACTIONS (2)
  - BUNDLE BRANCH BLOCK LEFT [None]
  - EJECTION FRACTION DECREASED [None]
